FAERS Safety Report 9152530 (Version 2)
Quarter: 2013Q1

REPORT INFORMATION
  Report Type: Spontaneous
  Country: US (occurrence: US)
  Receive Date: 20130308
  Receipt Date: 20130329
  Transmission Date: 20140127
  Serious: No
  Sender: FDA-Public Use
  Company Number: US-PFIZER INC-2013077060

PATIENT
  Age: 72 Year
  Sex: Male
  Weight: 81.63 kg

DRUGS (3)
  1. ADVIL [Suspect]
     Indication: SPINAL OSTEOARTHRITIS
     Dosage: 200 MG, 3-4 TIMES A DAY
     Dates: start: 201302
  2. PRILOSEC [Concomitant]
     Indication: DYSPEPSIA
     Dosage: UNK
  3. FISH OIL [Concomitant]
     Dosage: UNK

REACTIONS (1)
  - Drug ineffective [Unknown]
